FAERS Safety Report 8535531-6 (Version None)
Quarter: 2012Q3

REPORT INFORMATION
  Report Type: 
  Country: None (occurrence: None)
  Receive Date: 20120718
  Receipt Date: 20120718
  Transmission Date: 20120928
  Serious: No
  Sender: FDA-Public Use
  Company Number: None

PATIENT
  Age: 62 Year
  Sex: Female

DRUGS (2)
  1. VELCADE [Suspect]
     Indication: MULTIPLE MYELOMA
     Dosage: SQ
     Route: 058
  2. REVLIMID [Suspect]

REACTIONS (4)
  - INJECTION SITE ERYTHEMA [None]
  - DECREASED APPETITE [None]
  - FATIGUE [None]
  - ASTHENIA [None]
